FAERS Safety Report 14477366 (Version 2)
Quarter: 2018Q3

REPORT INFORMATION
  Report Type: Report from Study
  Country: US (occurrence: US)
  Receive Date: 20180201
  Receipt Date: 20180723
  Transmission Date: 20181010
  Serious: No
  Sender: FDA-Public Use
  Company Number: US-EXELIXIS-CABO-17011352

PATIENT
  Sex: Male

DRUGS (5)
  1. CABOMETYX [Suspect]
     Active Substance: CABOZANTINIB S-MALATE
     Indication: RENAL CANCER
     Dosage: 60 MG, QD
     Route: 048
     Dates: start: 20171117
  2. MUCOMYST [Concomitant]
     Active Substance: ACETYLCYSTEINE
     Dosage: UNK
  3. ACETYLCYSTEINE. [Concomitant]
     Active Substance: ACETYLCYSTEINE
     Dosage: UNK
  4. ASPIRIN. [Concomitant]
     Active Substance: ASPIRIN
     Dosage: UNK
  5. PROTONIX [Concomitant]
     Active Substance: PANTOPRAZOLE SODIUM
     Dosage: UNK

REACTIONS (14)
  - Diarrhoea [Unknown]
  - Scab [Unknown]
  - Blister [Unknown]
  - Oral pain [Unknown]
  - Dysgeusia [Not Recovered/Not Resolved]
  - Genital herpes [Unknown]
  - Arthralgia [Unknown]
  - Dermatitis [Unknown]
  - Pain in extremity [Unknown]
  - Renal disorder [Unknown]
  - Oral mucosal blistering [Not Recovered/Not Resolved]
  - Aphonia [Not Recovered/Not Resolved]
  - Drug administration error [Unknown]
  - Asthenia [Unknown]
